FAERS Safety Report 5465598-3 (Version None)
Quarter: 2007Q3

REPORT INFORMATION
  Report Type: 
  Country: None (occurrence: None)
  Receive Date: 20070924
  Receipt Date: 20070914
  Transmission Date: 20080115
  Serious: Yes (Hospitalization)
  Sender: FDA-Public Use
  Company Number: US-AMGEN-US243388

PATIENT
  Sex: Male

DRUGS (4)
  1. PANITUMUMAB [Suspect]
     Indication: COLORECTAL CANCER
     Route: 042
     Dates: start: 20070820
  2. FOLINIC ACID [Concomitant]
     Route: 065
  3. FLUOROURACIL [Concomitant]
     Route: 065
  4. IRINOTECAN HCL [Concomitant]
     Route: 065

REACTIONS (2)
  - DEHYDRATION [None]
  - MUCOSAL INFLAMMATION [None]
